FAERS Safety Report 19651000 (Version 1)
Quarter: 2021Q3

REPORT INFORMATION
  Report Type: Spontaneous
  Country: GB (occurrence: GB)
  Receive Date: 20210802
  Receipt Date: 20210802
  Transmission Date: 20211014
  Serious: Yes (Disabling, Other)
  Sender: FDA-Public Use
  Company Number: GB-ELI_LILLY_AND_COMPANY-GB202107009506

PATIENT
  Age: 22 Year
  Sex: Female
  Weight: 69 kg

DRUGS (14)
  1. EVENING PRIMROSE OIL [OENOTHERA BIENNIS OIL] [Concomitant]
     Dosage: UNK UNK, UNKNOWN
     Route: 065
  2. OMEPRAZOL [OMEPRAZOLE] [Concomitant]
     Active Substance: OMEPRAZOLE
     Dosage: UNK UNK, UNKNOWN
     Route: 065
  3. PARACETAMOL [Concomitant]
     Active Substance: ACETAMINOPHEN
     Dosage: UNK, UNKNOWN
     Route: 065
  4. COD LIVER OIL [COD?LIVER OIL] [Concomitant]
     Dosage: UNK UNK, UNKNOWN
     Route: 065
  5. VITAMINS NOS [Concomitant]
     Active Substance: VITAMINS
     Dosage: UNK UNK, UNKNOWN
     Route: 065
  6. MAGNESIUM [Concomitant]
     Active Substance: MAGNESIUM
     Dosage: UNK, UNKNOWN
     Route: 065
  7. NEFOPAM HYDROCHLORIDE [Concomitant]
     Active Substance: NEFOPAM HYDROCHLORIDE
     Dosage: UNK, UNKNOWN
     Route: 065
  8. DULOXETINE HYDROCHLORIDE. [Suspect]
     Active Substance: DULOXETINE HYDROCHLORIDE
     Indication: ARTHRALGIA
     Dosage: 20 MG, UNK
     Route: 048
     Dates: start: 20210110, end: 20210715
  9. COCODAMOL [Concomitant]
     Active Substance: ACETAMINOPHEN\CODEINE PHOSPHATE
     Dosage: UNK, UNKNOWN
     Route: 065
  10. FEXOFENADINE HYDROCHLORIDE. [Concomitant]
     Active Substance: FEXOFENADINE HYDROCHLORIDE
     Dosage: UNK, UNKNOWN
     Route: 065
  11. HEMP [Concomitant]
     Active Substance: HEMP
     Dosage: UNK, UNKNOWN
     Route: 065
  12. CODEIN [Concomitant]
     Active Substance: CODEINE
     Dosage: UNK, UNKNOWN
     Route: 065
  13. RIGEVIDON [ETHINYLESTRADIOL;LEVONORGESTREL] [Concomitant]
     Active Substance: ETHINYL ESTRADIOL\LEVONORGESTREL
     Dosage: UNK, UNKNOWN
     Route: 065
  14. VITAMIN C [Concomitant]
     Active Substance: ASCORBIC ACID
     Dosage: UNK UNK, UNKNOWN
     Route: 065

REACTIONS (9)
  - Nasal inflammation [Recovering/Resolving]
  - Choking [Recovering/Resolving]
  - Burning sensation [Recovering/Resolving]
  - Nasal injury [Recovering/Resolving]
  - Sinonasal obstruction [Recovering/Resolving]
  - Heat stroke [Recovering/Resolving]
  - Epistaxis [Recovering/Resolving]
  - Pruritus [Recovering/Resolving]
  - Illness [Recovering/Resolving]

NARRATIVE: CASE EVENT DATE: 20210113
